FAERS Safety Report 23165612 (Version 2)
Quarter: 2023Q4

REPORT INFORMATION
  Report Type: Spontaneous
  Country: US (occurrence: US)
  Receive Date: 20231109
  Receipt Date: 20231220
  Transmission Date: 20240110
  Serious: No
  Sender: FDA-Public Use
  Company Number: US-MYLANLABS-2023M1118275

PATIENT
  Sex: Female
  Weight: 56.7 kg

DRUGS (2)
  1. LATANOPROST [Suspect]
     Active Substance: LATANOPROST
     Indication: Glaucoma
     Dosage: 1 GTT DROPS, QD (ONCE DAILY ON EACH EYE)
     Route: 047
     Dates: start: 202304
  2. LATANOPROST [Suspect]
     Active Substance: LATANOPROST
     Dosage: UNK
     Route: 065

REACTIONS (3)
  - Eye irritation [Recovered/Resolved]
  - Eye pain [Recovered/Resolved]
  - Foreign body sensation in eyes [Recovered/Resolved]
